FAERS Safety Report 4846499-8 (Version None)
Quarter: 2005Q4

REPORT INFORMATION
  Report Type: 
  Country: None (occurrence: None)
  Receive Date: 20051201
  Receipt Date: 20051118
  Transmission Date: 20060501
  Serious: Yes (Hospitalization)
  Sender: FDA-Public Use
  Company Number: 2005158490

PATIENT
  Age: 34 Year
  Sex: Female

DRUGS (3)
  1. SULFASALAZINE [Suspect]
     Indication: ARTHRITIS
     Dosage: 2 GRAM (1 GRAM, 2 IN 1 D), ORAL
     Route: 048
     Dates: start: 20050905
  2. HYDROXYCHLOROQUINE (HYDROXYCHLOROQUINE) [Concomitant]
  3. IBUPROFEN [Concomitant]

REACTIONS (6)
  - EOSINOPHILIA [None]
  - LIVER FUNCTION TEST ABNORMAL [None]
  - LYMPHADENOPATHY [None]
  - PYREXIA [None]
  - RASH [None]
  - SWELLING FACE [None]
